FAERS Safety Report 5030829-0 (Version None)
Quarter: 2006Q2

REPORT INFORMATION
  Report Type: 
  Country: None (occurrence: None)
  Receive Date: 20060619
  Receipt Date: 20060607
  Transmission Date: 20061013
  Serious: Yes (Life-Threatening, Hospitalization, Disabling)
  Sender: FDA-Public Use
  Company Number: 200610399BYL

PATIENT
  Age: 70 Year
  Sex: Male
  Weight: 38.5 kg

DRUGS (7)
  1. NIFEDIPINE [Suspect]
     Indication: ANGINA PECTORIS
     Dosage: 30 MG, BID, ORAL
     Route: 048
     Dates: start: 20050127, end: 20050504
  2. NIFEDIPINE [Suspect]
     Indication: HYPERTENSION
     Dosage: 30 MG, BID, ORAL
     Route: 048
     Dates: start: 20050127, end: 20050504
  3. MEXITIL [Suspect]
     Indication: VENTRICULAR EXTRASYSTOLES
     Dosage: 50 MG, BID, ORAL
     Route: 048
     Dates: start: 20050127, end: 20050504
  4. PLETAL [Concomitant]
  5. ALPRAZOLAM [Concomitant]
  6. SIGMART [Concomitant]
  7. FERROMIA [Concomitant]

REACTIONS (9)
  - ALANINE AMINOTRANSFERASE INCREASED [None]
  - ASPARTATE AMINOTRANSFERASE INCREASED [None]
  - BLOOD ALKALINE PHOSPHATASE INCREASED [None]
  - BLOOD LACTATE DEHYDROGENASE INCREASED [None]
  - CARDIAC FAILURE [None]
  - DIALYSIS [None]
  - GAMMA-GLUTAMYLTRANSFERASE INCREASED [None]
  - RENAL FAILURE [None]
  - TOXIC EPIDERMAL NECROLYSIS [None]
